FAERS Safety Report 21435897 (Version 2)
Quarter: 2023Q1

REPORT INFORMATION
  Report Type: Report from Study
  Country: AU (occurrence: AU)
  Receive Date: 20221010
  Receipt Date: 20230128
  Transmission Date: 20230418
  Serious: Yes (Hospitalization, Other)
  Sender: FDA-Public Use
  Company Number: AU-ABBVIE-4142191

PATIENT
  Sex: Female

DRUGS (11)
  1. CARBIDOPA\LEVODOPA [Suspect]
     Active Substance: CARBIDOPA\LEVODOPA
     Indication: Parkinson^s disease
     Dosage: CONTINUOUS RATE OF 2.4 MILLITRE(ML)/ HOUR WITH A MORNING DOSE OF 5.5 ML AND AN EXTRA DOSE OF 1ML;...
     Route: 050
     Dates: start: 20180604
  2. CARBIDOPA\LEVODOPA [Suspect]
     Active Substance: CARBIDOPA\LEVODOPA
  3. BUPRENORPHINE [Concomitant]
     Active Substance: BUPRENORPHINE
     Indication: Analgesic therapy
     Route: 061
  4. BUPRENORPHINE [Concomitant]
     Active Substance: BUPRENORPHINE
     Indication: Analgesic therapy
     Route: 060
  5. DULCOLAX NOS [Concomitant]
     Active Substance: BISACODYL OR DOCUSATE SODIUM
     Indication: Product used for unknown indication
  6. FLUOXETINE [Concomitant]
     Active Substance: FLUOXETINE HYDROCHLORIDE
     Indication: Product used for unknown indication
     Dosage: IN THE MORNING
  7. RIVAROXABAN [Concomitant]
     Active Substance: RIVAROXABAN
     Indication: Product used for unknown indication
  8. PREGABALIN [Concomitant]
     Active Substance: PREGABALIN
     Indication: Product used for unknown indication
  9. MOVICOL [Concomitant]
     Active Substance: POLYETHYLENE GLYCOL 3350\POTASSIUM CHLORIDE\SODIUM BICARBONATE\SODIUM CHLORIDE
     Indication: Product used for unknown indication
  10. MIRTAZAPINE [Concomitant]
     Active Substance: MIRTAZAPINE
     Indication: Product used for unknown indication
     Dosage: NIGHT
  11. TAPENTADOL [Concomitant]
     Active Substance: TAPENTADOL
     Indication: Product used for unknown indication
     Dosage: IMMEDIATE RELEASE

REACTIONS (26)
  - Pulmonary embolism [Unknown]
  - Blood urine present [Unknown]
  - Stoma site haemorrhage [Unknown]
  - Off label use [Unknown]
  - Skin abrasion [Unknown]
  - Stoma site pain [Unknown]
  - Device occlusion [Unknown]
  - Haematuria [Unknown]
  - Amnesia [Unknown]
  - Device leakage [Recovered/Resolved]
  - Therapeutic product effect incomplete [Unknown]
  - Urinary incontinence [Unknown]
  - Back pain [Recovering/Resolving]
  - Hypomania [Recovering/Resolving]
  - Medical device site discharge [Unknown]
  - Euphoric mood [Recovering/Resolving]
  - Dyskinesia [Recovering/Resolving]
  - Anal incontinence [Unknown]
  - Constipation [Unknown]
  - Joint range of motion decreased [Unknown]
  - Fatigue [Unknown]
  - Somnolence [Unknown]
  - Device occlusion [Recovered/Resolved]
  - Musculoskeletal stiffness [Unknown]
  - Wheelchair user [Unknown]
  - Hospitalisation [Unknown]

NARRATIVE: CASE EVENT DATE: 20210101
